FAERS Safety Report 5136154-1 (Version None)
Quarter: 2006Q4

REPORT INFORMATION
  Report Type: 
  Country: None (occurrence: None)
  Receive Date: 20061027
  Receipt Date: 20061016
  Transmission Date: 20070319
  Serious: Yes (Hospitalization)
  Sender: FDA-Public Use
  Company Number: US-JNJFOC-20061004819

PATIENT
  Age: 56 Year
  Sex: Female
  Weight: 45 kg

DRUGS (4)
  1. FENTANYL CITRATE [Suspect]
     Indication: DRUG USE FOR UNKNOWN INDICATION
     Route: 062
  2. BENZO [Suspect]
     Indication: INTENTIONAL DRUG MISUSE
     Route: 065
  3. OXYCODONE HCL [Suspect]
     Indication: INTENTIONAL DRUG MISUSE
     Route: 065
  4. APAP TAB [Suspect]
     Indication: INTENTIONAL DRUG MISUSE
     Route: 065

REACTIONS (14)
  - ALANINE AMINOTRANSFERASE INCREASED [None]
  - ASPARTATE AMINOTRANSFERASE INCREASED [None]
  - BACK PAIN [None]
  - BLOOD GLUCOSE INCREASED [None]
  - BLOOD PRESSURE INCREASED [None]
  - BRADYCARDIA [None]
  - CARDIAC ENZYMES INCREASED [None]
  - CAROTID ARTERY STENOSIS [None]
  - DECUBITUS ULCER [None]
  - DRUG SCREEN POSITIVE [None]
  - HEPATIC ENZYME INCREASED [None]
  - MYOCARDIAL INFARCTION [None]
  - OVERDOSE [None]
  - SOMNOLENCE [None]
